FAERS Safety Report 10056774 (Version 2)
Quarter: 2014Q2

REPORT INFORMATION
  Report Type: Spontaneous
  Country: US (occurrence: US)
  Receive Date: 20140403
  Receipt Date: 20140417
  Transmission Date: 20141212
  Serious: Yes (Other)
  Sender: FDA-Public Use
  Company Number: PHHY2014US036632

PATIENT
  Sex: Female

DRUGS (3)
  1. ISOTRETINOIN [Suspect]
     Indication: ACNE CYSTIC
     Dosage: 0.5 MG/KG/DAY (40 MG/D)
  2. ISOTRETINOIN [Suspect]
     Dosage: 50 MG/DAY
  3. ISOTRETINOIN [Suspect]
     Dosage: 70 MG/DAY

REACTIONS (6)
  - Chronic pigmented purpura [Recovering/Resolving]
  - Dry skin [Recovering/Resolving]
  - Rash pruritic [Recovering/Resolving]
  - Rash macular [Recovering/Resolving]
  - Petechiae [Recovering/Resolving]
  - Headache [Unknown]
